FAERS Safety Report 24861370 (Version 1)
Quarter: 2025Q1

REPORT INFORMATION
  Report Type: Spontaneous
  Country: US (occurrence: US)
  Receive Date: 20250120
  Receipt Date: 20250120
  Transmission Date: 20250409
  Serious: No
  Sender: Kenvue
  Company Number: US-KENVUE-20241207631

PATIENT
  Age: 65 Year
  Sex: Female

DRUGS (5)
  1. IMODIUM [Suspect]
     Active Substance: LOPERAMIDE HYDROCHLORIDE
     Indication: Product used for unknown indication
     Route: 065
  2. OFEV [Concomitant]
     Active Substance: NINTEDANIB
     Indication: Idiopathic pulmonary fibrosis
     Dosage: 300 MILLIGRAM,(150 MILLIGRAM(S), 1 IN 12 HOUR
     Route: 048
     Dates: start: 20240919
  3. OFEV [Concomitant]
     Active Substance: NINTEDANIB
     Indication: Interstitial lung disease
     Dosage: 300 MILLIGRAM,(150 MILLIGRAM(S), 1 IN 12 HOUR
     Route: 048
     Dates: start: 20240919
  4. OFEV [Concomitant]
     Active Substance: NINTEDANIB
     Dosage: 200 MILLIGRAM, (100 MILLIGRAM(S), 1 IN 12 HOUR)EVERY OTHER DAY
     Route: 048
  5. OFEV [Concomitant]
     Active Substance: NINTEDANIB
     Route: 048
     Dates: start: 20240924

REACTIONS (1)
  - Nausea [Recovered/Resolved]

NARRATIVE: CASE EVENT DATE: 20240923
